FAERS Safety Report 9916120 (Version 2)
Quarter: 2014Q1

REPORT INFORMATION
  Report Type: Spontaneous
  Country: US (occurrence: None)
  Receive Date: 20140219
  Receipt Date: 20140228
  Transmission Date: 20141002
  Serious: Yes (Hospitalization)
  Sender: FDA-Public Use
  Company Number: JK1229(27A)

PATIENT
  Sex: 0

DRUGS (2)
  1. RICOLA NATURAL HERB COUGH DROPS (4.9 MG. MENTHOL) [Suspect]
     Indication: COUGH
     Dosage: ORALLY 1-2 DROPS/2 HOURS ?
  2. RICOLA NATURAL HERB COUGH DROPS (4.9 MG. MENTHOL) [Suspect]
     Indication: OROPHARYNGEAL PAIN
     Dosage: ORALLY 1-2 DROPS/2 HOURS ?

REACTIONS (1)
  - Hypersensitivity [None]
